FAERS Safety Report 6019209-9 (Version None)
Quarter: 2008Q4

REPORT INFORMATION
  Report Type: 
  Country: None (occurrence: None)
  Receive Date: 20081224
  Receipt Date: 20081217
  Transmission Date: 20090506
  Serious: Yes (Other)
  Sender: FDA-Public Use
  Company Number: FR-BAYER-200830022GPV

PATIENT
  Age: 40 Year
  Sex: Female
  Weight: 59 kg

DRUGS (1)
  1. MIRENA [Suspect]
     Indication: METRORRHAGIA
     Dosage: UNIT DOSE: 52 MG
     Route: 015
     Dates: start: 20080926, end: 20081015

REACTIONS (1)
  - UTERINE LEIOMYOMA [None]
